FAERS Safety Report 9338154 (Version 1)
Quarter: 2013Q2

REPORT INFORMATION
  Report Type: Report from Study
  Country: US (occurrence: US)
  Receive Date: 20130610
  Receipt Date: 20130610
  Transmission Date: 20140414
  Serious: Yes (Hospitalization)
  Sender: FDA-Public Use
  Company Number: US-ROCHE-1234495

PATIENT
  Sex: Female
  Weight: 84.9 kg

DRUGS (9)
  1. XOLAIR [Suspect]
     Indication: ASTHMA
     Route: 058
     Dates: start: 20130513
  2. SPIRIVA [Concomitant]
     Route: 048
     Dates: start: 20130604
  3. ALBUTEROL [Concomitant]
     Indication: WHEEZING
     Route: 048
     Dates: start: 2011
  4. PREDNISONE [Concomitant]
     Route: 048
     Dates: start: 20130531
  5. BROVANA [Concomitant]
     Indication: CHRONIC OBSTRUCTIVE PULMONARY DISEASE
     Route: 065
     Dates: start: 20130605
  6. ROPINIROLE [Concomitant]
     Route: 065
  7. RANITIDINE [Concomitant]
     Indication: GASTROOESOPHAGEAL REFLUX DISEASE
     Route: 065
  8. ADVIL [Concomitant]
     Indication: PAIN
  9. TYLENOL [Concomitant]
     Indication: PAIN

REACTIONS (3)
  - Asthma [Recovered/Resolved]
  - Menstruation irregular [Not Recovered/Not Resolved]
  - Back pain [Not Recovered/Not Resolved]
